FAERS Safety Report 10736425 (Version 2)
Quarter: 2015Q1

REPORT INFORMATION
  Report Type: Spontaneous
  Country: US (occurrence: US)
  Receive Date: 20150126
  Receipt Date: 20150225
  Transmission Date: 20150721
  Serious: No
  Sender: FDA-Public Use
  Company Number: US-ASTRAZENECA-2015SE04622

PATIENT
  Age: 70 Year
  Sex: Female
  Weight: 71.2 kg

DRUGS (3)
  1. SYMBICORT [Suspect]
     Active Substance: BUDESONIDE\FORMOTEROL FUMARATE DIHYDRATE
     Indication: ASTHMA
     Dosage: 160/4.5 MCG; TWO PUFFS TWO TIMES A DAY
     Route: 055
     Dates: start: 20141220
  2. VENTOLINE [Concomitant]
     Active Substance: ALBUTEROL
  3. SYMBICORT [Suspect]
     Active Substance: BUDESONIDE\FORMOTEROL FUMARATE DIHYDRATE
     Indication: ASTHMA
     Dosage: 160/4.5 MCG, TWO PUFFS TWO TIMS A DAY
     Route: 055
     Dates: start: 2011

REACTIONS (3)
  - Dyspnoea [Recovering/Resolving]
  - Asthma [Recovering/Resolving]
  - Intentional product misuse [Not Recovered/Not Resolved]

NARRATIVE: CASE EVENT DATE: 2011
